FAERS Safety Report 7601229-1 (Version None)
Quarter: 2011Q2

REPORT INFORMATION
  Report Type: 
  Country: None (occurrence: None)
  Receive Date: 20110629
  Receipt Date: 20110405
  Transmission Date: 20111010
  Serious: Yes (Other)
  Sender: FDA-Public Use
  Company Number: US-005092

PATIENT
  Sex: Female

DRUGS (2)
  1. PROGESTERONE [Suspect]
     Dosage: (VAGINAL)
     Route: 067
     Dates: start: 20110404
  2. PRENATAL VITAMINS /01549301/ [Concomitant]

REACTIONS (1)
  - DRUG ADMINISTRATION ERROR [None]
